FAERS Safety Report 24557750 (Version 1)
Quarter: 2024Q4

REPORT INFORMATION
  Report Type: Spontaneous
  Country: DK (occurrence: DK)
  Receive Date: 20241028
  Receipt Date: 20241028
  Transmission Date: 20250114
  Serious: Yes (Death, Hospitalization, Other)
  Sender: MYLAN
  Company Number: DK-ORIFARM-032318

PATIENT
  Sex: Female

DRUGS (6)
  1. AZATHIOPRINE [Suspect]
     Active Substance: AZATHIOPRINE
     Indication: Systemic lupus erythematosus
     Dosage: UNK (AZATHIOPRINE WAS ADDED OVER A 6-YEAR PERIOD AND DISCONTINUED 4 YEARS AGO)
     Route: 065
  2. AZATHIOPRINE [Suspect]
     Active Substance: AZATHIOPRINE
     Dosage: UNK (DUE TO RECURRING SKIN AND JOINT SYMPTOMS, LOW-DOSE AZATHIOPRINE WAS REINSTATED AFTER 2 YEARS
     Route: 065
  3. SERTRALINE [Suspect]
     Active Substance: SERTRALINE HYDROCHLORIDE
     Indication: Systemic lupus erythematosus
     Dosage: UNK (GENERAL PRACTITIONER HAD INITIATED SERTRALINE, 3 WEEKS BEFORE ADMISSION WITH NO EFFECT)
     Route: 065
  4. PREDNISOLONE [Suspect]
     Active Substance: PREDNISOLONE
     Indication: Systemic lupus erythematosus
     Dosage: UNK (LOW-DOSE PREDNISOLONE (MORE THAN OR EQUAL TO 5 MG/DAY FOR THE LAST 10 YEARS))
     Route: 065
  5. PREDNISOLONE [Suspect]
     Active Substance: PREDNISOLONE
     Dosage: UNK (HIGH-DOSE PREDNISOLONE)
     Route: 065
  6. PEMBROLIZUMAB [Suspect]
     Active Substance: PEMBROLIZUMAB
     Indication: Progressive multifocal leukoencephalopathy
     Dosage: 2 MILLIGRAM/KILOGRAM (THE FIRST DOSE WAS ADMINISTERED 2 MONTHS AFTER THE DIAGNOSIS, FOLLOWING THE
     Route: 065

REACTIONS (4)
  - Progressive multifocal leukoencephalopathy [Fatal]
  - Malignant glioma [Fatal]
  - Urinary tract infection [Unknown]
  - Drug ineffective [Unknown]
